FAERS Safety Report 5647217-6 (Version None)
Quarter: 2008Q1

REPORT INFORMATION
  Report Type: 
  Country: None (occurrence: None)
  Receive Date: 20080303
  Receipt Date: 20080229
  Transmission Date: 20080703
  Serious: Yes (Hospitalization)
  Sender: FDA-Public Use
  Company Number: US-GILEAD-2008-0015149

PATIENT
  Sex: Female
  Weight: 83.99 kg

DRUGS (7)
  1. LETAIRIS [Suspect]
     Indication: PULMONARY HYPERTENSION
     Route: 048
     Dates: start: 20071219
  2. ALDACTONE [Concomitant]
     Route: 048
  3. LASIX [Concomitant]
     Route: 048
  4. REVATIO [Concomitant]
     Route: 048
  5. VICODIN [Concomitant]
     Dosage: 5/500 MG
     Route: 048
  6. DOXYCYCLINE [Concomitant]
     Route: 048
  7. POTASSIUM CHLORIDE [Concomitant]
     Route: 048

REACTIONS (3)
  - CHOLECYSTITIS ACUTE [None]
  - HAEMORRHAGE [None]
  - RED BLOOD CELL COUNT DECREASED [None]
